FAERS Safety Report 13091759 (Version 1)
Quarter: 2017Q1

REPORT INFORMATION
  Report Type: Spontaneous
  Country: US (occurrence: US)
  Receive Date: 20170104
  Receipt Date: 20170104
  Transmission Date: 20170428
  Serious: Yes (Hospitalization)
  Sender: FDA-Public Use
  Company Number: None

PATIENT
  Age: 41 Year
  Sex: Male

DRUGS (1)
  1. COSENTYX [Suspect]
     Active Substance: SECUKINUMAB
     Indication: SKIN DISORDER
     Route: 058
     Dates: start: 20161025, end: 20161224

REACTIONS (1)
  - Colitis [None]

NARRATIVE: CASE EVENT DATE: 20161224
